FAERS Safety Report 7065587 (Version 4)
Quarter: 2017Q1

REPORT INFORMATION
  Report Type: Spontaneous
  Country: JP (occurrence: JP)
  Receive Date: 20090728
  Receipt Date: 20170213
  Transmission Date: 20170429
  Serious: Yes (Death, Hospitalization, Other)
  Sender: FDA-Public Use
  Company Number: JP-BRISTOL-MYERS SQUIBB COMPANY-14714372

PATIENT
  Age: 52 Year
  Sex: Female
  Weight: 40 kg

DRUGS (16)
  1. LOXOPROFEN SODIUM [Concomitant]
     Active Substance: LOXOPROFEN SODIUM
     Indication: CANCER PAIN
     Dosage: HYDRATE
     Route: 048
     Dates: start: 20080818, end: 20090105
  2. NITRAZEPAM [Concomitant]
     Active Substance: NITRAZEPAM
     Indication: INSOMNIA
     Dosage: 1 MG, QD
     Route: 048
     Dates: start: 20081106, end: 20090105
  3. DEXAMETHASONE SODIUM PHOSPHATE. [Concomitant]
     Active Substance: DEXAMETHASONE SODIUM PHOSPHATE
     Indication: OEDEMA
     Route: 065
  4. CODEINE PHOSPHATE [Concomitant]
     Active Substance: CODEINE PHOSPHATE
     Indication: DYSPNOEA
     Dosage: HYDRATE  FROM = SOLN
     Route: 048
     Dates: start: 20080818, end: 20090105
  5. ZOLPIDEM TARTRATE. [Concomitant]
     Active Substance: ZOLPIDEM TARTRATE
     Indication: INSOMNIA
     Dosage: FORM = TAB
     Route: 048
     Dates: start: 20081106, end: 20090105
  6. DEXAMETHASONE SODIUM PHOSPHATE. [Concomitant]
     Active Substance: DEXAMETHASONE SODIUM PHOSPHATE
     Indication: DYSPNOEA
     Dosage: 4X2 MG/WEEK
     Route: 048
     Dates: start: 20081027, end: 20081215
  7. LETROZOLE. [Concomitant]
     Active Substance: LETROZOLE
     Indication: MALIGNANT PLEURAL EFFUSION
     Dosage: FORM = TAB
     Route: 048
     Dates: start: 20080213, end: 20090105
  8. OXYCODONE HYDROCHLORIDE. [Concomitant]
     Active Substance: OXYCODONE HYDROCHLORIDE
     Indication: CANCER PAIN
     Dosage: FORM = TAB  ALSO TAKEN OXYCODONE HCL GRAN 10MGX1/D FROM 06NOV08-05JAN09
     Route: 048
     Dates: start: 20081106, end: 20090105
  9. DEXAMETHASONE SODIUM PHOSPHATE. [Concomitant]
     Active Substance: DEXAMETHASONE SODIUM PHOSPHATE
     Indication: NAUSEA
     Route: 065
  10. TAXOL [Suspect]
     Active Substance: PACLITAXEL
     Indication: BREAST CANCER
     Dosage: 2ND ADMINISTERED:06NOV08   3RD:17NOV08  4TH:01DEC08  5TH:08DEC08  6TH:15DEC08
     Route: 041
     Dates: start: 20081027, end: 20081215
  11. TAXOL [Suspect]
     Active Substance: PACLITAXEL
     Indication: MALIGNANT PLEURAL EFFUSION
     Route: 065
  12. SULFAMETHOXAZOLE + TRIMETHOPRIM [Concomitant]
     Active Substance: SULFAMETHOXAZOLE\TRIMETHOPRIM
     Indication: PNEUMONITIS
     Dosage: UNK
     Route: 048
     Dates: start: 20090105, end: 20090302
  13. ETIZOLAM [Concomitant]
     Active Substance: ETIZOLAM
     Indication: DYSPNOEA
     Route: 065
  14. PREDNISOLONE. [Concomitant]
     Active Substance: PREDNISOLONE
     Indication: PNEUMONITIS
     Dosage: 80MG:05JAN09-20JAN09  60MG:21JAN09-11FEB09  40MG:12FEB09-02MAR09
     Route: 065
     Dates: start: 20090105, end: 20090302
  15. CIPROFLOXACIN HCL [Concomitant]
     Active Substance: CIPROFLOXACIN HYDROCHLORIDE
     Indication: PNEUMONITIS
     Dosage: 600 MG, QD
     Route: 065
     Dates: start: 20090105, end: 20090302
  16. ETIZOLAM [Concomitant]
     Active Substance: ETIZOLAM
     Indication: INSOMNIA
     Dosage: .5 MG, QD
     Route: 048
     Dates: start: 20081117, end: 20090105

REACTIONS (4)
  - Pneumonitis [Fatal]
  - Herpes zoster [Recovered/Resolved with Sequelae]
  - Nausea [Recovering/Resolving]
  - Hyperkalaemia [Recovering/Resolving]

NARRATIVE: CASE EVENT DATE: 20081104
